FAERS Safety Report 20712032 (Version 1)
Quarter: 2022Q2

REPORT INFORMATION
  Report Type: Spontaneous
  Country: US (occurrence: US)
  Receive Date: 20220414
  Receipt Date: 20220414
  Transmission Date: 20220721
  Serious: No
  Sender: FDA-Public Use
  Company Number: US-PFIZER INC-202200215054

PATIENT
  Age: 62 Year
  Sex: Female

DRUGS (1)
  1. IBRANCE [Suspect]
     Active Substance: PALBOCICLIB
     Dosage: 125 MG, CYCLIC (TAKE 1 CAPSULE MOUTH ONCE DAILY WITH FOOD FOR 21 DAYS THEN OFF FOR 7 DAYS)
     Route: 048

REACTIONS (4)
  - Abdominal discomfort [Unknown]
  - Stomatitis [Unknown]
  - Hyperaesthesia [Unknown]
  - Arthralgia [Unknown]
